FAERS Safety Report 18918904 (Version 1)
Quarter: 2021Q1

REPORT INFORMATION
  Report Type: Spontaneous
  Country: US (occurrence: US)
  Receive Date: 20210220
  Receipt Date: 20210220
  Transmission Date: 20210420
  Serious: No
  Sender: FDA-Public Use
  Company Number: NVSC2021US029261

PATIENT

DRUGS (2)
  1. DABRAFENIB [Suspect]
     Active Substance: DABRAFENIB
     Indication: NON-SMALL CELL LUNG CANCER
     Route: 048
  2. TRAMETINIB [Suspect]
     Active Substance: TRAMETINIB
     Indication: NON-SMALL CELL LUNG CANCER
     Route: 048

REACTIONS (7)
  - Blood bilirubin increased [Unknown]
  - Arthritis [Unknown]
  - Rash [Unknown]
  - Diarrhoea [Unknown]
  - Liver function test increased [Unknown]
  - Pyrexia [Unknown]
  - Fatigue [Unknown]
